FAERS Safety Report 9807550 (Version 1)
Quarter: 2014Q1

REPORT INFORMATION
  Report Type: Spontaneous
  Country: US (occurrence: US)
  Receive Date: 20140110
  Receipt Date: 20140110
  Transmission Date: 20141002
  Serious: No
  Sender: FDA-Public Use
  Company Number: US-SANOFI-AVENTIS-2013SA016555

PATIENT
  Sex: Female

DRUGS (4)
  1. PLAVIX [Suspect]
  2. COUMADIN [Suspect]
  3. PRAVASTATIN [Concomitant]
  4. LOW THYROID MEDICINE [Concomitant]

REACTIONS (4)
  - Fatigue [Unknown]
  - Photosensitivity reaction [Unknown]
  - Emotional disorder [Unknown]
  - Muscular weakness [Unknown]
